FAERS Safety Report 14564127 (Version 2)
Quarter: 2018Q1

REPORT INFORMATION
  Report Type: Spontaneous
  Country: US (occurrence: US)
  Receive Date: 20180222
  Receipt Date: 20180312
  Transmission Date: 20180509
  Serious: Yes (Other)
  Sender: FDA-Public Use
  Company Number: US-GEHC-2018CSU000734

PATIENT
  Age: 38 Year
  Sex: Female

DRUGS (1)
  1. OMNIPAQUE [Suspect]
     Active Substance: IOHEXOL
     Indication: SALIVARY GLAND NEOPLASM
     Dosage: 75 ML, UNK
     Route: 042
     Dates: start: 20180215, end: 20180215

REACTIONS (2)
  - Throat tightness [Unknown]
  - Sneezing [Unknown]

NARRATIVE: CASE EVENT DATE: 20180215
